FAERS Safety Report 16451296 (Version 2)
Quarter: 2019Q3

REPORT INFORMATION
  Report Type: Spontaneous
  Country: US (occurrence: US)
  Receive Date: 20190619
  Receipt Date: 20190730
  Transmission Date: 20191004
  Serious: Yes (Other)
  Sender: FDA-Public Use
  Company Number: US-BEH-2019103143

PATIENT
  Age: 15 Year
  Sex: Female
  Weight: 57.6 kg

DRUGS (3)
  1. BENADRYL 24 D [Concomitant]
     Active Substance: LORATADINE\PSEUDOEPHEDRINE SULFATE
     Dosage: UNK
     Route: 065
  2. TYLENOL 8HR [Concomitant]
     Active Substance: ACETAMINOPHEN
     Route: 065
  3. HIZENTRA [Suspect]
     Active Substance: HUMAN IMMUNOGLOBULIN G
     Dosage: 7 GRAM, QW
     Route: 065
     Dates: start: 2015

REACTIONS (6)
  - Fatigue [Unknown]
  - Infectious mononucleosis [Unknown]
  - No adverse event [Unknown]
  - Underdose [Unknown]
  - Lymphadenopathy [Unknown]
  - Therapeutic product effect incomplete [Unknown]
